FAERS Safety Report 25161761 (Version 1)
Quarter: 2025Q2

REPORT INFORMATION
  Report Type: Spontaneous
  Country: US (occurrence: US)
  Receive Date: 20250404
  Receipt Date: 20250404
  Transmission Date: 20250717
  Serious: Yes (Life-Threatening)
  Sender: BAYER
  Company Number: US-BAYER-2025A042782

PATIENT
  Age: 47 Year
  Sex: Female

DRUGS (2)
  1. ASPIRIN [Suspect]
     Active Substance: ASPIRIN
     Indication: Pericarditis
  2. COLCHICINE [Concomitant]
     Active Substance: COLCHICINE

REACTIONS (3)
  - Pericardial haemorrhage [None]
  - Cardiogenic shock [None]
  - Product prescribing issue [None]
